FAERS Safety Report 23816128 (Version 1)
Quarter: 2024Q2

REPORT INFORMATION
  Report Type: Spontaneous
  Country: GB (occurrence: GB)
  Receive Date: 20240503
  Receipt Date: 20240503
  Transmission Date: 20240715
  Serious: Yes (Hospitalization, Disabling, Other)
  Sender: FDA-Public Use
  Company Number: GB-BRISTOL-MYERS SQUIBB COMPANY-2024-066806

PATIENT
  Age: 74 Year
  Sex: Female

DRUGS (6)
  1. NIVOLUMAB [Suspect]
     Active Substance: NIVOLUMAB
     Indication: Malignant melanoma
     Route: 042
     Dates: start: 20240104
  2. NIVOLUMAB [Suspect]
     Active Substance: NIVOLUMAB
     Route: 042
     Dates: start: 20240129
  3. NIVOLUMAB [Suspect]
     Active Substance: NIVOLUMAB
     Route: 042
     Dates: start: 20240226
  4. IPILIMUMAB [Suspect]
     Active Substance: IPILIMUMAB
     Indication: Malignant melanoma
     Route: 042
     Dates: start: 20240104
  5. IPILIMUMAB [Suspect]
     Active Substance: IPILIMUMAB
     Route: 042
     Dates: start: 20240129
  6. IPILIMUMAB [Suspect]
     Active Substance: IPILIMUMAB
     Route: 042
     Dates: start: 20240226

REACTIONS (17)
  - Constipation [Unknown]
  - Pruritus [Unknown]
  - Cough [Unknown]
  - Mass [Unknown]
  - Asthenia [Unknown]
  - Mass [Unknown]
  - Malaise [Unknown]
  - Migraine [Unknown]
  - Hypokinesia [Not Recovered/Not Resolved]
  - Dysarthria [Unknown]
  - Hypophysitis [Unknown]
  - Fatigue [Not Recovered/Not Resolved]
  - Swelling face [Not Recovered/Not Resolved]
  - Off label use [Unknown]
  - Decreased appetite [Unknown]
  - Pain [Not Recovered/Not Resolved]
  - Sepsis [Not Recovered/Not Resolved]

NARRATIVE: CASE EVENT DATE: 20240101
